FAERS Safety Report 7045864-0 (Version None)
Quarter: 2010Q4

REPORT INFORMATION
  Report Type: 
  Country: None (occurrence: None)
  Receive Date: 20101014
  Receipt Date: 20101002
  Transmission Date: 20110411
  Serious: Yes (Hospitalization, Other)
  Sender: FDA-Public Use
  Company Number: AT-ELI_LILLY_AND_COMPANY-AT201010001048

PATIENT
  Sex: Male

DRUGS (16)
  1. CYMBALTA [Suspect]
     Dosage: UNK UNK, DAILY (1/D)
     Dates: start: 20100505
  2. CYMBALTA [Interacting]
     Dosage: 60 MG, DAILY (1/D)
  3. ABILIFY [Interacting]
     Dosage: 5 MG, UNK
  4. ABILIFY [Interacting]
     Dosage: 10 MG, UNK
  5. ABILIFY [Interacting]
     Dosage: 15 MG, UNK
  6. ABILIFY [Interacting]
     Dosage: 20 MG, UNK
  7. ZOLPIDEM [Concomitant]
     Dosage: 15 MG, UNK
  8. ZOLPIDEM [Concomitant]
     Dosage: 25 MG, UNK
  9. PANTOPRAZOLE SODIUM [Concomitant]
     Dosage: 40 MG, UNK
  10. PINDOLOL [Concomitant]
  11. TRAZODONE HCL [Concomitant]
  12. MEBEVERINE [Concomitant]
     Dosage: 400 MG, UNK
  13. COLPERMIN [Concomitant]
  14. MILNACIPRAN [Concomitant]
     Dosage: 25 MG, UNK
  15. MILNACIPRAN [Concomitant]
     Dosage: 50 MG, UNK
  16. MILNACIPRAN [Concomitant]
     Dosage: 75 MG, UNK

REACTIONS (5)
  - DRUG INTERACTION [None]
  - DYSKINESIA [None]
  - HOSPITALISATION [None]
  - HYPOAESTHESIA [None]
  - MUSCULOSKELETAL STIFFNESS [None]
